FAERS Safety Report 9154078 (Version 1)
Quarter: 2013Q1

REPORT INFORMATION
  Report Type: Spontaneous
  Country: CN (occurrence: CN)
  Receive Date: 20130311
  Receipt Date: 20130311
  Transmission Date: 20140127
  Serious: Yes (Other)
  Sender: FDA-Public Use
  Company Number: CN-SANOFI-AVENTIS-2013SA021635

PATIENT
  Age: 50 Year
  Sex: Male

DRUGS (8)
  1. RIFAMPICIN [Suspect]
     Indication: TUBERCULOSIS
     Route: 065
  2. RIFAMPICIN [Suspect]
     Indication: TUBERCULOSIS
     Route: 065
  3. ISONIAZID [Concomitant]
     Indication: TUBERCULOSIS
  4. ISONIAZID [Concomitant]
     Indication: TUBERCULOSIS
  5. PYRAZINAMIDE [Concomitant]
     Indication: TUBERCULOSIS
  6. PYRAZINAMIDE [Concomitant]
     Indication: TUBERCULOSIS
  7. ETHAMBUTOL [Concomitant]
     Indication: TUBERCULOSIS
  8. ETHAMBUTOL [Concomitant]
     Indication: TUBERCULOSIS

REACTIONS (12)
  - Lupus-like syndrome [Unknown]
  - Malaise [Unknown]
  - Arthralgia [Unknown]
  - Rash [Unknown]
  - Erythema [Unknown]
  - Pyrexia [Unknown]
  - Pleurisy [Unknown]
  - Pericarditis [Unknown]
  - Hyperkeratosis [Unknown]
  - Atrophy [Unknown]
  - Red blood cell sedimentation rate increased [Unknown]
  - Antinuclear antibody positive [Unknown]
